FAERS Safety Report 7620015-X (Version None)
Quarter: 2011Q3

REPORT INFORMATION
  Report Type: 
  Country: None (occurrence: None)
  Receive Date: 20110719
  Receipt Date: 20110713
  Transmission Date: 20111222
  Serious: No
  Sender: FDA-Public Use
  Company Number: US-PFIZER INC-2011158507

PATIENT
  Sex: Female
  Weight: 70.295 kg

DRUGS (2)
  1. ACETYLSALICYLIC ACID [Concomitant]
     Dosage: UNK
  2. VFEND [Suspect]
     Indication: HISTOPLASMOSIS
     Dosage: 200 MG, 2X/DAY
     Route: 048
     Dates: start: 20100901, end: 20110713

REACTIONS (8)
  - APPETITE DISORDER [None]
  - ABDOMINAL PAIN [None]
  - NAUSEA [None]
  - INSOMNIA [None]
  - FOOD CRAVING [None]
  - PAIN [None]
  - FEELING ABNORMAL [None]
  - WEIGHT DECREASED [None]
